FAERS Safety Report 5601486-7 (Version None)
Quarter: 2008Q1

REPORT INFORMATION
  Report Type: 
  Country: None (occurrence: None)
  Receive Date: 20080124
  Receipt Date: 20080121
  Transmission Date: 20080703
  Serious: Yes (Hospitalization)
  Sender: FDA-Public Use
  Company Number: US-WYE-H02254808

PATIENT

DRUGS (1)
  1. SIROLIMUS [Suspect]
     Dosage: INITIAL DOSE WAS 0.25 MG PER SQ METER OF BODY SURFACE THEN ADJUSTED INDIVIDUALLY
     Route: 048

REACTIONS (1)
  - TUMOUR HAEMORRHAGE [None]
